FAERS Safety Report 21194239 (Version 2)
Quarter: 2022Q3

REPORT INFORMATION
  Report Type: Other
  Country: US (occurrence: None)
  Receive Date: 20220810
  Receipt Date: 20220818
  Transmission Date: 20221027
  Serious: Yes (Other)
  Sender: FDA-Public Use
  Company Number: US-ROCHE-3153871

PATIENT
  Sex: Female

DRUGS (2)
  1. XOLAIR [Suspect]
     Active Substance: OMALIZUMAB
     Indication: Urticaria
     Dosage: INJECT 300MG SUBCUTANEOUSLY EVERY MONTH
     Route: 058
  2. XOLAIR [Suspect]
     Active Substance: OMALIZUMAB

REACTIONS (8)
  - COVID-19 pneumonia [Unknown]
  - Pneumonia [Unknown]
  - General physical health deterioration [Unknown]
  - Blood pressure increased [Unknown]
  - Stress [Unknown]
  - Malaise [Unknown]
  - COVID-19 [Unknown]
  - Feeling abnormal [Unknown]
